FAERS Safety Report 6577258-6 (Version None)
Quarter: 2010Q1

REPORT INFORMATION
  Report Type: 
  Country: None (occurrence: None)
  Receive Date: 20100210
  Receipt Date: 20091229
  Transmission Date: 20100710
  Serious: Yes (Death, Other)
  Sender: FDA-Public Use
  Company Number: US-BAXTER-2009BH012610

PATIENT
  Age: 80 Year
  Sex: Female
  Weight: 50 kg

DRUGS (27)
  1. HEPARIN SODIUM INJECTION [Suspect]
     Indication: CORONARY ARTERY BYPASS
     Route: 042
     Dates: start: 20070815, end: 20070815
  2. HEPARIN SODIUM INJECTION [Suspect]
     Indication: INTRAVENOUS CATHETER MANAGEMENT
     Route: 042
     Dates: start: 20070815, end: 20070815
  3. HEPARIN SODIUM INJECTION [Suspect]
     Route: 042
     Dates: start: 20070821, end: 20070901
  4. HEPARIN SODIUM INJECTION [Suspect]
     Route: 042
     Dates: start: 20070821, end: 20070901
  5. HEPARIN SODIUM INJECTION [Suspect]
     Route: 040
     Dates: start: 20070819, end: 20070819
  6. HEPARIN SODIUM INJECTION [Suspect]
     Route: 040
     Dates: start: 20070819, end: 20070819
  7. HEPARIN SODIUM 1,000 UNITS AND SODIUM CHLORIDE 0.9% [Suspect]
     Indication: THROMBOSIS PROPHYLAXIS
     Route: 041
     Dates: start: 20070904, end: 20070907
  8. HEPARIN SODIUM INJECTION [Suspect]
     Route: 042
     Dates: start: 20070815, end: 20070815
  9. HEPARIN SODIUM INJECTION [Suspect]
     Route: 042
     Dates: start: 20070815, end: 20070815
  10. HEPARIN SODIUM INJECTION [Suspect]
     Route: 042
     Dates: start: 20070821, end: 20070901
  11. HEPARIN SODIUM INJECTION [Suspect]
     Route: 042
     Dates: start: 20070821, end: 20070901
  12. HEPARIN SODIUM INJECTION [Suspect]
     Route: 040
     Dates: start: 20070819, end: 20070819
  13. HEPARIN SODIUM INJECTION [Suspect]
     Route: 040
     Dates: start: 20070819, end: 20070819
  14. HEPARIN SODIUM INJECTION [Suspect]
     Route: 042
     Dates: start: 20070815, end: 20070815
  15. HEPARIN SODIUM INJECTION [Suspect]
     Route: 042
     Dates: start: 20070815, end: 20070815
  16. HEPARIN SODIUM INJECTION [Suspect]
     Route: 042
     Dates: start: 20070821, end: 20070901
  17. HEPARIN SODIUM INJECTION [Suspect]
     Route: 042
     Dates: start: 20070821, end: 20070901
  18. HEPARIN SODIUM INJECTION [Suspect]
     Route: 040
     Dates: start: 20070819, end: 20070819
  19. HEPARIN SODIUM INJECTION [Suspect]
     Route: 040
     Dates: start: 20070819, end: 20070819
  20. METHOTREXATE [Concomitant]
     Indication: DRUG USE FOR UNKNOWN INDICATION
     Route: 048
  21. PLAQUENIL [Concomitant]
     Indication: DRUG USE FOR UNKNOWN INDICATION
     Route: 048
  22. NEXIUM [Concomitant]
     Indication: DRUG USE FOR UNKNOWN INDICATION
     Route: 048
  23. LASIX [Concomitant]
     Indication: DRUG USE FOR UNKNOWN INDICATION
     Route: 048
  24. LISINOPRIL [Concomitant]
     Indication: DRUG USE FOR UNKNOWN INDICATION
     Route: 048
  25. FOLIC ACID [Concomitant]
     Indication: DRUG USE FOR UNKNOWN INDICATION
     Route: 065
  26. XALATAN [Concomitant]
     Indication: DRUG USE FOR UNKNOWN INDICATION
     Route: 065
  27. ALPHAGAN [Concomitant]
     Indication: DRUG USE FOR UNKNOWN INDICATION
     Route: 065

REACTIONS (23)
  - ASTHENIA [None]
  - ATRIAL FIBRILLATION [None]
  - CANDIDURIA [None]
  - CARDIAC FAILURE CONGESTIVE [None]
  - CARDIOGENIC SHOCK [None]
  - CORONARY ARTERY DISEASE [None]
  - DIARRHOEA [None]
  - ENTEROCOCCAL INFECTION [None]
  - GASTROINTESTINAL HAEMORRHAGE [None]
  - GENERAL PHYSICAL HEALTH DETERIORATION [None]
  - HYPOTENSION [None]
  - ILEUS [None]
  - NAUSEA [None]
  - PLATELET COUNT DECREASED [None]
  - PNEUMONIA [None]
  - PNEUMONIA ASPIRATION [None]
  - RENAL FAILURE [None]
  - RENAL FAILURE ACUTE [None]
  - RESPIRATORY FAILURE [None]
  - RHEUMATOID ARTHRITIS [None]
  - SEPSIS [None]
  - THROMBOCYTOPENIA [None]
  - VOMITING [None]
